FAERS Safety Report 20827711 (Version 3)
Quarter: 2022Q4

REPORT INFORMATION
  Report Type: Spontaneous
  Country: FR (occurrence: FR)
  Receive Date: 20220513
  Receipt Date: 20221201
  Transmission Date: 20230113
  Serious: Yes (Death)
  Sender: FDA-Public Use
  Company Number: FR-NOVARTISPH-NVSC2022FR111248

PATIENT
  Age: 7 Month
  Sex: Female
  Weight: 5.48 kg

DRUGS (2)
  1. OXOMEMAZINE [Suspect]
     Active Substance: OXOMEMAZINE
     Indication: Viral infection
     Dosage: UNK
     Route: 065
  2. ACETAMINOPHEN [Suspect]
     Active Substance: ACETAMINOPHEN
     Indication: Viral infection
     Dosage: UNK
     Route: 065

REACTIONS (3)
  - Sudden infant death syndrome [Fatal]
  - Product use in unapproved indication [Unknown]
  - Contraindicated product administered [Unknown]
